FAERS Safety Report 14881946 (Version 13)
Quarter: 2021Q1

REPORT INFORMATION
  Report Type: Spontaneous
  Country: US (occurrence: US)
  Receive Date: 20180511
  Receipt Date: 20210208
  Transmission Date: 20210419
  Serious: Yes (Hospitalization, Other)
  Sender: FDA-Public Use
  Company Number: US-PFIZER INC-2018192193

PATIENT
  Age: 67 Year
  Sex: Female
  Weight: 59 kg

DRUGS (7)
  1. LETROZOLE. [Concomitant]
     Active Substance: LETROZOLE
     Dosage: UNK
  2. FASLODEX [Concomitant]
     Active Substance: FULVESTRANT
     Dosage: UNK
  3. PRAVASTATIN. [Concomitant]
     Active Substance: PRAVASTATIN
     Indication: BLOOD CHOLESTEROL ABNORMAL
     Dosage: UNK
  4. IBRANCE [Suspect]
     Active Substance: PALBOCICLIB
     Indication: BREAST CANCER METASTATIC
     Dosage: 125 MG, CYCLIC (ONE A DAY FOR 3 WEEKS ON AND 1 WEEK OFF)
  5. IBRANCE [Suspect]
     Active Substance: PALBOCICLIB
     Dosage: 125 MG, CYCLIC (ONE A DAY FOR 3 WEEKS ON AND 1 WEEK OFF)
     Route: 048
     Dates: start: 201701
  6. TAMADOL [Concomitant]
     Active Substance: TRAMADOL HYDROCHLORIDE
     Indication: PAIN
     Dosage: 50 MG, AS NEEDED [EVERY 6 HOURS]
     Route: 048
  7. XGEVA [Concomitant]
     Active Substance: DENOSUMAB
     Dosage: UNK

REACTIONS (13)
  - Alopecia [Recovering/Resolving]
  - Asthenia [Not Recovered/Not Resolved]
  - Hyperhidrosis [Not Recovered/Not Resolved]
  - Cardiac arrest [Unknown]
  - Somnolence [Not Recovered/Not Resolved]
  - Pain [Unknown]
  - Dry skin [Unknown]
  - Rib fracture [Recovered/Resolved]
  - Neoplasm progression [Unknown]
  - Hot flush [Not Recovered/Not Resolved]
  - Skin exfoliation [Unknown]
  - Toothache [Unknown]
  - Blood count abnormal [Unknown]

NARRATIVE: CASE EVENT DATE: 2017
